FAERS Safety Report 10036139 (Version 1)
Quarter: 2014Q1

REPORT INFORMATION
  Report Type: Spontaneous
  Country: US (occurrence: US)
  Receive Date: 20140325
  Receipt Date: 20140325
  Transmission Date: 20141002
  Serious: Yes (Other)
  Sender: FDA-Public Use
  Company Number: US-BRISTOL-MYERS SQUIBB COMPANY-20538815

PATIENT
  Age: 68 Year
  Sex: Female

DRUGS (1)
  1. BARACLUDE [Suspect]
     Dates: start: 2013

REACTIONS (2)
  - Shoulder operation [Unknown]
  - Musculoskeletal pain [Unknown]
